FAERS Safety Report 8335162-7 (Version None)
Quarter: 2012Q2

REPORT INFORMATION
  Report Type: 
  Country: None (occurrence: None)
  Receive Date: 20120503
  Receipt Date: 20120426
  Transmission Date: 20120825
  Serious: Yes (Hospitalization)
  Sender: FDA-Public Use
  Company Number: US-US-EMD SERONO, INC.-7108058

PATIENT
  Sex: Female

DRUGS (3)
  1. REBIF [Suspect]
     Route: 058
     Dates: start: 20120412
  2. REBIF [Suspect]
     Indication: PRODUCT USED FOR UNKNOWN INDICATION
     Dates: start: 20050803, end: 20120101
  3. REBIF [Suspect]
     Dates: start: 20120101, end: 20120101

REACTIONS (4)
  - DEHYDRATION [None]
  - DECREASED APPETITE [None]
  - FALL [None]
  - LOSS OF CONSCIOUSNESS [None]
